FAERS Safety Report 6114735-6 (Version None)
Quarter: 2009Q1

REPORT INFORMATION
  Report Type: 
  Country: None (occurrence: None)
  Receive Date: 20090313
  Receipt Date: 20090305
  Transmission Date: 20090719
  Serious: Yes (Other)
  Sender: FDA-Public Use
  Company Number: PHHY2009GR08415

PATIENT
  Age: 19 Year
  Sex: Male

DRUGS (1)
  1. CARBAMAZEPINE [Suspect]
     Dosage: UNK
     Route: 048

REACTIONS (3)
  - GLOMERULONEPHRITIS [None]
  - PERITONEAL DIALYSIS [None]
  - RENAL FAILURE [None]
